FAERS Safety Report 9353140 (Version 1)
Quarter: 2013Q2

REPORT INFORMATION
  Report Type: Report from Study
  Country: RS (occurrence: RS)
  Receive Date: 20130618
  Receipt Date: 20130618
  Transmission Date: 20140414
  Serious: Yes (Hospitalization)
  Sender: FDA-Public Use
  Company Number: RS-ELI_LILLY_AND_COMPANY-RS201209006268

PATIENT
  Age: 76 Year
  Sex: Male
  Weight: 75 kg

DRUGS (13)
  1. NECITUMUMAB (11F8) (LY3012211) [Suspect]
     Indication: NON-SMALL CELL LUNG CANCER
     Dosage: 800 MG, OTHER
     Dates: start: 20111214, end: 20120906
  2. NECITUMUMAB (11F8) (LY3012211) [Suspect]
     Dosage: 800 MG, OTHER
     Dates: start: 20120926
  3. GEMZAR [Suspect]
     Indication: NON-SMALL CELL LUNG CANCER
     Dosage: 2250 MG, OTHER
     Dates: start: 20111214, end: 20120412
  4. CISPLATIN [Suspect]
     Indication: NON-SMALL CELL LUNG CANCER
     Dosage: 0135 MG, OTHER
     Dates: start: 20111214, end: 20120404
  5. TRAMADOL [Concomitant]
     Indication: CHEST PAIN
     Dosage: UNK
     Dates: start: 20111128, end: 20120119
  6. TRAMADOL [Concomitant]
     Dosage: 100 MG, OTHER
     Dates: start: 20120809
  7. PARACETAMOL [Concomitant]
     Indication: CHEST PAIN
     Dosage: UNK
     Dates: start: 20111125
  8. FOSINOPRIL W/HYDROCHLOROTHIAZIDE [Concomitant]
     Indication: HYPERTENSION
     Dosage: UNK
     Dates: start: 20101130
  9. PROPAFENON [Concomitant]
     Indication: TACHYCARDIA
     Dosage: UNK
     Dates: start: 20111107
  10. FENOTEROL HYDROBROMIDE W/IPRATROPIUM BROMIDE [Concomitant]
     Indication: CHRONIC OBSTRUCTIVE PULMONARY DISEASE
     Dosage: UNK
     Dates: start: 20111125
  11. BECLOMETASONA DIPROPIONATO [Concomitant]
     Indication: CHRONIC OBSTRUCTIVE PULMONARY DISEASE
     Dosage: UNK
     Dates: start: 20111125
  12. BROMAZEPAM [Concomitant]
     Indication: TACHYCARDIA
     Dosage: UNK
     Dates: start: 20111205
  13. HYDROCORTISONE [Concomitant]
     Indication: RASH
     Dosage: 2.5 %, OTHER
     Dates: start: 20120220

REACTIONS (1)
  - Cerebral ischaemia [Recovered/Resolved]
